FAERS Safety Report 5210642-1 (Version None)
Quarter: 2006Q4

REPORT INFORMATION
  Report Type: 
  Country: None (occurrence: None)
  Receive Date: 20061106
  Receipt Date: 20060830
  Transmission Date: 20070319
  Serious: No
  Sender: FDA-Public Use
  Company Number: VNL_0194_2006

PATIENT
  Age: 85 Year
  Sex: Male
  Weight: 74.8435 kg

DRUGS (2)
  1. APOKYN [Suspect]
     Indication: PARKINSON'S DISEASE
     Dosage: DF SC
     Route: 058
     Dates: start: 20060825
  2. FOUR HANDFULS A DAY [Concomitant]

REACTIONS (3)
  - DERMATITIS ACNEIFORM [None]
  - PRURITUS [None]
  - RASH ERYTHEMATOUS [None]
